FAERS Safety Report 7934805-7 (Version None)
Quarter: 2011Q4

REPORT INFORMATION
  Report Type: 
  Country: None (occurrence: None)
  Receive Date: 20111122
  Receipt Date: 20111108
  Transmission Date: 20120403
  Serious: Yes (Hospitalization, Other)
  Sender: FDA-Public Use
  Company Number: ZA-BAYER-2011-110210

PATIENT
  Age: 4 Month

DRUGS (1)
  1. ACETYLSALICYLIC ACID SRT [Suspect]
     Indication: PRODUCT USED FOR UNKNOWN INDICATION
     Dosage: 300 MG, UNK

REACTIONS (5)
  - GASTROENTERITIS [None]
  - METABOLIC ACIDOSIS [None]
  - HYPOKALAEMIA [None]
  - SEPSIS [None]
  - GASTRITIS [None]
